FAERS Safety Report 4802540-X (Version None)
Quarter: 2005Q4

REPORT INFORMATION
  Report Type: 
  Country: None (occurrence: None)
  Receive Date: 20051014
  Receipt Date: 20050126
  Transmission Date: 20060501
  Serious: Yes (Other)
  Sender: FDA-Public Use
  Company Number: 2005008279

PATIENT
  Age: 79 Year
  Sex: Male
  Weight: 68.9467 kg

DRUGS (7)
  1. NEURONTIN [Suspect]
     Indication: POST HERPETIC NEURALGIA
     Dosage: ORAL
     Route: 048
     Dates: end: 20040101
  2. GABAPENTIN [Suspect]
     Indication: POST HERPETIC NEURALGIA
     Dosage: (800 MG, UNKNOWN), ORAL
     Route: 048
  3. WARFARIN SODIUM [Concomitant]
  4. AMLODIPINE BESYLATE [Concomitant]
  5. LISINOPRIL [Concomitant]
  6. AMIODARONE HCL [Concomitant]
  7. ROFECOXIB [Concomitant]

REACTIONS (4)
  - ATRIAL FIBRILLATION [None]
  - BLOOD PRESSURE FLUCTUATION [None]
  - DRUG INEFFECTIVE [None]
  - POST HERPETIC NEURALGIA [None]
